FAERS Safety Report 9785666 (Version 2)
Quarter: 2014Q1

REPORT INFORMATION
  Report Type: Spontaneous
  Country: DK (occurrence: CA)
  Receive Date: 20131227
  Receipt Date: 20140220
  Transmission Date: 20141002
  Serious: Yes (Death)
  Sender: FDA-Public Use
  Company Number: CA-FRI-1000052465

PATIENT
  Sex: Female

DRUGS (3)
  1. ESCITALOPRAM [Suspect]
     Indication: MAJOR DEPRESSION
     Dosage: 20 MG
     Route: 048
     Dates: start: 201003, end: 201311
  2. HYDROMORPH CONTIN [Concomitant]
     Dosage: 42 MG
     Route: 048
     Dates: end: 2013
  3. TAXOL [Concomitant]
     Route: 042
     Dates: end: 2013

REACTIONS (1)
  - Ovarian cancer [Fatal]
